FAERS Safety Report 18507973 (Version 2)
Quarter: 2021Q2

REPORT INFORMATION
  Report Type: Spontaneous
  Country: IT (occurrence: IT)
  Receive Date: 20201116
  Receipt Date: 20210618
  Transmission Date: 20210717
  Serious: Yes (Hospitalization)
  Sender: FDA-Public Use
  Company Number: IT-BAYER-2020-240288

PATIENT
  Age: 61 Year
  Sex: Male

DRUGS (8)
  1. LOPINAVIR/RITONAVIR [Concomitant]
     Active Substance: LOPINAVIR\RITONAVIR
     Indication: SEVERE ACUTE RESPIRATORY SYNDROME
  2. LOPINAVIR/RITONAVIR [Concomitant]
     Active Substance: LOPINAVIR\RITONAVIR
     Indication: COVID-19
  3. METHYLPREDNISOLONE. [Concomitant]
     Active Substance: METHYLPREDNISOLONE
     Indication: COVID-19
  4. ENOXAPARIN [Concomitant]
     Active Substance: ENOXAPARIN
     Indication: COVID-19
  5. CHLOROQUINE. [Suspect]
     Active Substance: CHLOROQUINE
     Indication: COVID-19
  6. METHYLPREDNISOLONE. [Concomitant]
     Active Substance: METHYLPREDNISOLONE
     Indication: SEVERE ACUTE RESPIRATORY SYNDROME
  7. CHLOROQUINE. [Suspect]
     Active Substance: CHLOROQUINE
     Indication: SEVERE ACUTE RESPIRATORY SYNDROME
  8. ENOXAPARIN [Concomitant]
     Active Substance: ENOXAPARIN
     Indication: SEVERE ACUTE RESPIRATORY SYNDROME

REACTIONS (2)
  - Hepatitis acute [None]
  - Toxicity to various agents [None]
